FAERS Safety Report 9397316 (Version 1)
Quarter: 2013Q3

REPORT INFORMATION
  Report Type: Spontaneous
  Country: US (occurrence: None)
  Receive Date: 20130708
  Receipt Date: 20130708
  Transmission Date: 20140515
  Serious: Yes (Disabling, Other)
  Sender: FDA-Public Use
  Company Number: 2013P1010829

PATIENT
  Age: 69 Year
  Sex: Female

DRUGS (5)
  1. ETHAMBUTOL [Suspect]
     Indication: MYCOBACTERIUM AVIUM COMPLEX INFECTION
     Dates: start: 200512
  2. ETHAMBUTOL [Suspect]
     Indication: PNEUMONIA
     Dates: start: 200512
  3. ETHAMBUTOL [Suspect]
     Indication: BRONCHITIS
     Dates: start: 200512
  4. RIFABUTIN [Concomitant]
  5. ZITHROMAX [Concomitant]

REACTIONS (9)
  - Toxicity to various agents [None]
  - Neuropathy peripheral [None]
  - Dysphonia [None]
  - Dysphonia [None]
  - Dyspnoea [None]
  - Vocal cord paralysis [None]
  - Blindness [None]
  - Hemianopia [None]
  - Optic atrophy [None]
